FAERS Safety Report 7249002-0 (Version None)
Quarter: 2011Q1

REPORT INFORMATION
  Report Type: 
  Country: None (occurrence: None)
  Receive Date: 20110128
  Receipt Date: 20110120
  Transmission Date: 20110831
  Serious: Yes (Hospitalization)
  Sender: FDA-Public Use
  Company Number: SG-BRISTOL-MYERS SQUIBB COMPANY-15500952

PATIENT
  Age: 67 Year
  Sex: Male

DRUGS (8)
  1. CARBOPLATIN [Suspect]
     Indication: NON-SMALL CELL LUNG CANCER
     Dosage: 1DF: AUC 6 MG/ML/MIN
     Route: 042
     Dates: start: 20100924
  2. ENALAPRIL [Concomitant]
     Indication: HYPERTENSION
     Dosage: 5MG:AUG02 TO 07OCT2010(8YEARS) 7.5MG BID:08OCT10 TO ONG
     Dates: start: 20020801
  3. VITAMIN B COMPLEX [Concomitant]
     Indication: NUTRITIONAL SUPPORT
     Dosage: 1DF: 1 TAB
     Dates: start: 20100601
  4. LOVASTATIN [Concomitant]
     Indication: HYPERLIPIDAEMIA
     Dates: start: 20020801
  5. ACETYLSALICYLIC ACID SRT [Concomitant]
     Indication: HYPERTENSION
     Dates: start: 20020801
  6. ATENOLOL [Concomitant]
     Indication: HYPERTENSION
     Dosage: 50MG:AUG2002 TO 07OCT2010 75MG: 08OCT2010 TO ONG
     Dates: start: 20020801
  7. PEGFILGRASTIM [Concomitant]
     Indication: PROPHYLAXIS
     Dosage: 24HOURS AFTER EACH CHEMO CYCLE
     Dates: start: 20100925
  8. PACLITAXEL [Suspect]
     Indication: NON-SMALL CELL LUNG CANCER
     Route: 042
     Dates: start: 20100924

REACTIONS (1)
  - DIZZINESS [None]
